FAERS Safety Report 10175355 (Version 1)
Quarter: 2014Q2

REPORT INFORMATION
  Report Type: Report from Study
  Country: US (occurrence: US)
  Receive Date: 20140515
  Receipt Date: 20140515
  Transmission Date: 20141212
  Serious: Yes (Hospitalization, Other)
  Sender: FDA-Public Use
  Company Number: US-ABBVIE-14P-163-1235218-00

PATIENT
  Age: 49 Year
  Sex: Male
  Weight: 115.77 kg

DRUGS (7)
  1. HUMIRA [Suspect]
     Indication: PSORIASIS
     Dates: start: 20140224
  2. UNKNOWN STATIN DRUGS [Concomitant]
     Indication: BLOOD CHOLESTEROL INCREASED
     Dosage: ^TWO UNKNOWN STATIN DRUGS^
  3. METOPROLOL [Concomitant]
     Indication: HYPERTENSION
  4. MULTIVITAMIN [Concomitant]
     Indication: VITAMIN SUPPLEMENTATION
     Route: 048
  5. ASA [Concomitant]
     Indication: CARDIAC DISORDER
     Route: 048
  6. FISH OIL [Concomitant]
     Indication: CARDIAC DISORDER
  7. FISH OIL [Concomitant]
     Indication: BLOOD CHOLESTEROL

REACTIONS (2)
  - Glucose tolerance impaired [Unknown]
  - Thrombosis [Recovering/Resolving]
